FAERS Safety Report 19433500 (Version 3)
Quarter: 2021Q3

REPORT INFORMATION
  Report Type: Report from Study
  Country: US (occurrence: US)
  Receive Date: 20210618
  Receipt Date: 20210811
  Transmission Date: 20211014
  Serious: Yes (Hospitalization)
  Sender: FDA-Public Use
  Company Number: NVSC2021US068805

PATIENT
  Age: 71 Year
  Sex: Male

DRUGS (1)
  1. ENTRESTO [Suspect]
     Active Substance: SACUBITRIL\VALSARTAN
     Indication: PRODUCT USED FOR UNKNOWN INDICATION
     Dosage: UNK UNK, BID
     Route: 048
     Dates: end: 20210702

REACTIONS (5)
  - Cough [Unknown]
  - Dyspnoea [Unknown]
  - Pulmonary oedema [Unknown]
  - Throat clearing [Unknown]
  - Asthma [Unknown]

NARRATIVE: CASE EVENT DATE: 20210702
